FAERS Safety Report 4425197-9 (Version None)
Quarter: 2004Q3

REPORT INFORMATION
  Report Type: 
  Country: None (occurrence: None)
  Receive Date: 20040809
  Receipt Date: 20040730
  Transmission Date: 20050211
  Serious: Yes (Other)
  Sender: FDA-Public Use
  Company Number: 202416

PATIENT
  Age: 13 Year
  Sex: Male

DRUGS (6)
  1. NUTROPIN AQ [Suspect]
     Indication: HYPOPITUITARISM
     Dates: start: 20001201, end: 20011201
  2. SAIZEN [Suspect]
     Indication: HYPOPITUITARISM
     Dosage: 4.4 MG, QD, SUBCUTANEOUS
     Route: 058
     Dates: start: 20010927, end: 20030910
  3. DDAVP (DESMOPRESSIN ACETATE) [Concomitant]
  4. SYNTHROID [Concomitant]
  5. CORTEF [Concomitant]
  6. METFORMIN HCL [Concomitant]

REACTIONS (1)
  - CRANIOPHARYNGIOMA [None]
